FAERS Safety Report 8500075-4 (Version None)
Quarter: 2012Q3

REPORT INFORMATION
  Report Type: 
  Country: None (occurrence: None)
  Receive Date: 20120710
  Receipt Date: 20120702
  Transmission Date: 20120928
  Serious: Yes (Hospitalization)
  Sender: FDA-Public Use
  Company Number: CZ-UCBSA-054427

PATIENT
  Age: 37 Year
  Sex: Female
  Weight: 58 kg

DRUGS (7)
  1. MESALASIME [Concomitant]
     Indication: CROHN'S DISEASE
     Route: 048
     Dates: start: 20050505
  2. CIMZIA [Suspect]
     Indication: CROHN'S DISEASE
     Dosage: NO OF DOSES RECEIVED: 75
     Route: 058
     Dates: start: 20050505, end: 20120301
  3. ITOPRID [Concomitant]
     Indication: CROHN'S DISEASE
     Route: 048
     Dates: start: 20080724, end: 20120610
  4. OMEPRAZOLE [Concomitant]
     Indication: CROHN'S DISEASE
     Route: 048
     Dates: start: 20120105, end: 20120610
  5. ENTIZOL [Concomitant]
     Indication: CROHN'S DISEASE
     Route: 048
     Dates: start: 20120322, end: 20120329
  6. SORBIFER [Concomitant]
     Indication: ANAEMIA
     Route: 048
     Dates: start: 20050505
  7. SORBIFER [Concomitant]
     Indication: CROHN'S DISEASE
     Route: 048
     Dates: start: 20050505

REACTIONS (1)
  - ABDOMINAL ABSCESS [None]
